FAERS Safety Report 4357164-8 (Version None)
Quarter: 2004Q2

REPORT INFORMATION
  Report Type: 
  Country: None (occurrence: None)
  Receive Date: 20040511
  Receipt Date: 20040426
  Transmission Date: 20050107
  Serious: Yes (Hospitalization)
  Sender: FDA-Public Use
  Company Number: US-JNJFOC-20040405828

PATIENT
  Sex: 0

DRUGS (1)
  1. ULTRAM [Suspect]
     Dosage: ORAL
     Route: 048

REACTIONS (1)
  - DRUG SCREEN POSITIVE [None]
